FAERS Safety Report 4606389-2 (Version None)
Quarter: 2005Q1

REPORT INFORMATION
  Report Type: 
  Country: None (occurrence: None)
  Receive Date: 20050311
  Receipt Date: 20041027
  Transmission Date: 20050727
  Serious: Yes (Disabling, Other)
  Sender: FDA-Public Use
  Company Number: US-MERCK-0410USA04175

PATIENT
  Age: 77 Year
  Sex: Female

DRUGS (17)
  1. NITROSTAT [Concomitant]
     Route: 065
  2. LEVOXYL [Concomitant]
     Route: 065
  3. PRILOSEC [Concomitant]
     Route: 065
  4. METAMUCIL-2 [Concomitant]
     Route: 065
  5. HYDRODIURIL [Concomitant]
     Route: 048
  6. ZETIA [Suspect]
     Indication: BLOOD CHOLESTEROL INCREASED
     Route: 048
     Dates: start: 20040801, end: 20040101
  7. ZETIA [Suspect]
     Route: 048
     Dates: start: 20040101, end: 20041001
  8. [THERAPY UNSPECIFIED] [Concomitant]
     Route: 065
  9. OCUVITE [Concomitant]
     Route: 065
  10. ADVIL [Concomitant]
     Route: 065
  11. PEPCID AC [Concomitant]
     Route: 048
  12. OGEN [Concomitant]
     Route: 065
  13. ASCORBIC ACID [Concomitant]
     Route: 065
  14. VITAMIN E [Concomitant]
     Route: 065
  15. CALCIUM CITRATE [Concomitant]
     Route: 065
  16. TEARS NATURALE [Concomitant]
     Route: 065
  17. ASPIRIN [Concomitant]
     Route: 065

REACTIONS (8)
  - ABDOMINAL PAIN [None]
  - ADVERSE EVENT [None]
  - ARTHRITIS [None]
  - CONSTIPATION [None]
  - DIARRHOEA [None]
  - FATIGUE [None]
  - PAIN [None]
  - THROAT IRRITATION [None]
